FAERS Safety Report 21268816 (Version 1)
Quarter: 2022Q3

REPORT INFORMATION
  Report Type: Spontaneous
  Country: US (occurrence: US)
  Receive Date: 20220830
  Receipt Date: 20220830
  Transmission Date: 20221027
  Serious: No
  Sender: FDA-Public Use
  Company Number: US-TARO PHARMACEUTICALS USA INC.-2022TAR00145

PATIENT
  Sex: Female

DRUGS (1)
  1. CLOBETASOL PROPIONATE [Interacting]
     Active Substance: CLOBETASOL PROPIONATE
     Indication: Fungal infection
     Dosage: UNK
     Route: 065

REACTIONS (2)
  - Rash vesicular [Unknown]
  - Off label use [Unknown]
